FAERS Safety Report 6526982-X (Version None)
Quarter: 2010Q1

REPORT INFORMATION
  Report Type: 
  Country: None (occurrence: None)
  Receive Date: 20100105
  Receipt Date: 20091229
  Transmission Date: 20100710
  Serious: Yes (Disabling, Other)
  Sender: FDA-Public Use
  Company Number: CA-PFIZER INC-2009297927

PATIENT
  Age: 57 Year
  Sex: Female
  Weight: 45.351 kg

DRUGS (3)
  1. GABAPENTIN [Suspect]
     Indication: PAIN
     Dosage: 100 MG, 1X/DAY (BEDTIME)
     Route: 048
     Dates: start: 20090916, end: 20091001
  2. GABAPENTIN [Suspect]
     Indication: SLEEP DISORDER
  3. LORAZEPAM [Concomitant]
     Dosage: 2 MG, 1X/DAY (BEDTIME)

REACTIONS (6)
  - CONFUSIONAL STATE [None]
  - DEPRESSION [None]
  - DISTURBANCE IN ATTENTION [None]
  - RASH PRURITIC [None]
  - SUICIDAL IDEATION [None]
  - VISUAL IMPAIRMENT [None]
